FAERS Safety Report 9311414 (Version 2)
Quarter: 2014Q1

REPORT INFORMATION
  Report Type: Spontaneous
  Country: US (occurrence: US)
  Receive Date: 20130528
  Receipt Date: 20140128
  Transmission Date: 20141002
  Serious: Yes (Other)
  Sender: FDA-Public Use
  Company Number: US-BAYER-2013-064909

PATIENT
  Age: 16 Year
  Sex: Female

DRUGS (5)
  1. YAZ [Suspect]
     Dosage: UNK
     Dates: start: 200808, end: 201005
  2. ALPRAZOLAM [Concomitant]
     Dosage: 0.25 MG, UNK
  3. CLONAZEPAM [Concomitant]
     Dosage: 0.5 MG, UNK
  4. OMEPRAZOLE [Concomitant]
     Dosage: 20 MG, UNK
  5. ZOLPIDEM [Concomitant]
     Dosage: 5 MG, UNK

REACTIONS (5)
  - Gallbladder disorder [None]
  - Injury [None]
  - Pain [None]
  - Pain [None]
  - Cholelithiasis [None]
